FAERS Safety Report 24309658 (Version 1)
Quarter: 2024Q3

REPORT INFORMATION
  Report Type: Spontaneous
  Country: US (occurrence: US)
  Receive Date: 20240912
  Receipt Date: 20240912
  Transmission Date: 20241016
  Serious: No
  Sender: JOHNSON AND JOHNSON
  Company Number: US-JNJFOC-20240920377

PATIENT
  Age: 32 Year
  Sex: Male

DRUGS (1)
  1. SPRAVATO [Suspect]
     Active Substance: ESKETAMINE
     Indication: Major depression
     Dates: start: 20240901, end: 20240905

REACTIONS (2)
  - Aggression [Unknown]
  - Drug screen positive [Unknown]

NARRATIVE: CASE EVENT DATE: 20240905
